FAERS Safety Report 10081167 (Version 1)
Quarter: 2014Q2

REPORT INFORMATION
  Report Type: Spontaneous
  Country: US (occurrence: US)
  Receive Date: 20140416
  Receipt Date: 20140416
  Transmission Date: 20141212
  Serious: No
  Sender: FDA-Public Use
  Company Number: US-009507513-1403USA011464

PATIENT
  Sex: Male

DRUGS (1)
  1. CLARITIN [Suspect]
     Indication: PRODUCT USED FOR UNKNOWN INDICATION
     Dosage: 10 MG ONCE
     Route: 048
     Dates: start: 20140313, end: 20140313

REACTIONS (3)
  - Unevaluable event [Recovering/Resolving]
  - Insomnia [Recovering/Resolving]
  - Dry mouth [Recovering/Resolving]
